FAERS Safety Report 9630295 (Version 2)
Quarter: 2013Q4

REPORT INFORMATION
  Report Type: Spontaneous
  Country: US (occurrence: US)
  Receive Date: 20131017
  Receipt Date: 20131221
  Transmission Date: 20140711
  Serious: Yes (Hospitalization)
  Sender: FDA-Public Use
  Company Number: US-JNJFOC-20131006923

PATIENT
  Age: 43 Year
  Sex: Female

DRUGS (2)
  1. LOPERAMIDE HYDROCHLORIDE [Suspect]
     Route: 048
  2. LOPERAMIDE HYDROCHLORIDE [Suspect]
     Indication: DRUG DEPENDENCE
     Dosage: 140 TABLETS
     Route: 048

REACTIONS (6)
  - Ventricular tachycardia [Recovered/Resolved]
  - Syncope [Recovered/Resolved]
  - Drug abuse [Unknown]
  - Overdose [Unknown]
  - Intentional drug misuse [Unknown]
  - Off label use [Unknown]
